FAERS Safety Report 21715469 (Version 1)
Quarter: 2022Q4

REPORT INFORMATION
  Report Type: Spontaneous
  Country: US (occurrence: US)
  Receive Date: 20221212
  Receipt Date: 20221212
  Transmission Date: 20230113
  Serious: No
  Sender: FDA-Public Use
  Company Number: US-ALLERGAN-2222582US

PATIENT
  Sex: Female

DRUGS (4)
  1. BYSTOLIC [Suspect]
     Active Substance: NEBIVOLOL HYDROCHLORIDE
     Indication: Hypertension
     Dosage: 20 MG
     Route: 048
     Dates: start: 2019
  2. COVID-19 VACCINE [Concomitant]
     Indication: COVID-19 immunisation
     Dosage: UNK UNK, SINGLE
     Route: 030
     Dates: start: 2021, end: 2021
  3. COVID-19 VACCINE [Concomitant]
     Dosage: UNK UNK, SINGLE
     Route: 030
     Dates: start: 2021, end: 2021
  4. COVID-19 VACCINE [Concomitant]
     Dosage: UNK UNK, SINGLE
     Route: 030
     Dates: start: 2022, end: 2022

REACTIONS (2)
  - Cough [Not Recovered/Not Resolved]
  - Pharyngeal swelling [Not Recovered/Not Resolved]

NARRATIVE: CASE EVENT DATE: 20190101
